FAERS Safety Report 25002834 (Version 3)
Quarter: 2025Q3

REPORT INFORMATION
  Report Type: Spontaneous
  Country: JP (occurrence: JP)
  Receive Date: 20250224
  Receipt Date: 20250819
  Transmission Date: 20251021
  Serious: Yes (Disabling, Other)
  Sender: ASTELLAS
  Company Number: JP-ASTELLAS-2025-AER-002660

PATIENT
  Age: 63 Year
  Sex: Female

DRUGS (5)
  1. PROGRAF [Suspect]
     Active Substance: TACROLIMUS
     Indication: Immunosuppressant drug therapy
     Route: 048
  2. PROGRAF [Suspect]
     Active Substance: TACROLIMUS
     Route: 048
  3. PROGRAF [Suspect]
     Active Substance: TACROLIMUS
     Route: 048
  4. MYCOPHENOLATE MOFETIL [Concomitant]
     Active Substance: MYCOPHENOLATE MOFETIL
     Indication: Immunosuppressant drug therapy
     Route: 065
  5. METHYLPREDNISOLONE [Concomitant]
     Active Substance: METHYLPREDNISOLONE
     Indication: Immunosuppressant drug therapy
     Route: 065

REACTIONS (7)
  - BK virus infection [Recovered/Resolved]
  - Transitional cell carcinoma [Recovering/Resolving]
  - Central serous chorioretinopathy [Not Recovered/Not Resolved]
  - Psychotic disorder due to a general medical condition [Recovering/Resolving]
  - Malignant neoplasm of renal pelvis [Recovering/Resolving]
  - Blindness unilateral [Not Recovered/Not Resolved]
  - Presbyacusis [Recovering/Resolving]

NARRATIVE: CASE EVENT DATE: 20170101
